FAERS Safety Report 4851514-1 (Version None)
Quarter: 2005Q4

REPORT INFORMATION
  Report Type: 
  Country: None (occurrence: None)
  Receive Date: 20051212
  Receipt Date: 20050621
  Transmission Date: 20060501
  Serious: Yes (Hospitalization, Disabling)
  Sender: FDA-Public Use
  Company Number: US-ROCHE-408663

PATIENT
  Age: 18 Year
  Sex: Male
  Weight: 49.9 kg

DRUGS (2)
  1. ACCUTANE [Suspect]
     Route: 048
     Dates: start: 19931217, end: 19940614
  2. MINOCIN [Concomitant]
     Route: 048
     Dates: start: 19931217

REACTIONS (38)
  - ABDOMINAL PAIN [None]
  - ABDOMINAL PAIN UPPER [None]
  - ANHEDONIA [None]
  - ANXIETY [None]
  - BALANCE DISORDER [None]
  - BLOOD IRON DECREASED [None]
  - BLOOD MAGNESIUM DECREASED [None]
  - CHEST PAIN [None]
  - CONSTIPATION [None]
  - DYSPEPSIA [None]
  - DYSPNOEA [None]
  - DYSPNOEA EXERTIONAL [None]
  - ELECTROCARDIOGRAM ST-T CHANGE [None]
  - EROSIVE OESOPHAGITIS [None]
  - GASTRITIS [None]
  - HAEMATOCRIT DECREASED [None]
  - HAEMOGLOBIN DECREASED [None]
  - HAEMORRHOIDS [None]
  - HEADACHE [None]
  - HIATUS HERNIA [None]
  - HYPOAESTHESIA [None]
  - INSOMNIA [None]
  - MASS [None]
  - METASTASES TO LYMPH NODES [None]
  - NAUSEA [None]
  - NIGHT SWEATS [None]
  - OESOPHAGEAL ULCER [None]
  - PALPITATIONS [None]
  - PEPTIC ULCER [None]
  - PNEUMONIA [None]
  - PYREXIA [None]
  - RED BLOOD CELL COUNT DECREASED [None]
  - SINUS TACHYCARDIA [None]
  - STOMATITIS [None]
  - TESTICULAR TORSION [None]
  - TESTIS CANCER [None]
  - VOMITING [None]
  - WHITE BLOOD CELL COUNT DECREASED [None]
